FAERS Safety Report 6116327-1 (Version None)
Quarter: 2009Q1

REPORT INFORMATION
  Report Type: 
  Country: None (occurrence: None)
  Receive Date: 20090314
  Receipt Date: 20081208
  Transmission Date: 20090719
  Serious: No
  Sender: FDA-Public Use
  Company Number: US-ABBOTT-08P-163-0491688-00

PATIENT
  Sex: Male
  Weight: 73.548 kg

DRUGS (4)
  1. HUMIRA [Suspect]
     Indication: ANKYLOSING SPONDYLITIS
     Dates: start: 20081014, end: 20081111
  2. FINASTERIDE [Concomitant]
     Indication: PROSTATIC DISORDER
  3. SERETIDE [Concomitant]
     Indication: ANKYLOSING SPONDYLITIS
  4. SALBUTAMOL [Concomitant]
     Indication: ANKYLOSING SPONDYLITIS

REACTIONS (3)
  - HYPERCHLORHYDRIA [None]
  - PRURITUS [None]
  - URTICARIA [None]
